FAERS Safety Report 5991420-2 (Version None)
Quarter: 2008Q4

REPORT INFORMATION
  Report Type: 
  Country: None (occurrence: None)
  Receive Date: 20081211
  Receipt Date: 20081202
  Transmission Date: 20090506
  Serious: Yes (Other)
  Sender: FDA-Public Use
  Company Number: CH-ROCHE-600869

PATIENT
  Age: 65 Year
  Sex: Male

DRUGS (2)
  1. BONIVA [Suspect]
     Indication: OSTEOPOROSIS
     Route: 048
     Dates: end: 20080101
  2. BONIVA [Suspect]
     Dosage: STRENGTH AND FORMULATION: 3 MG/VIAL, TDD REPORTED: 2 INJ/TOTAL
     Route: 042
     Dates: start: 20080101

REACTIONS (2)
  - DIARRHOEA [None]
  - VASCULITIS [None]
